FAERS Safety Report 17236832 (Version 2)
Quarter: 2020Q1

REPORT INFORMATION
  Report Type: Report from Study
  Country: ES (occurrence: ES)
  Receive Date: 20200106
  Receipt Date: 20200113
  Transmission Date: 20200409
  Serious: Yes (Life-Threatening, Hospitalization)
  Sender: FDA-Public Use
  Company Number: ES-ASTELLAS-2020US000275

PATIENT
  Age: 84 Year
  Sex: Male

DRUGS (2)
  1. AS3156378 [Suspect]
     Active Substance: AZACITIDINE
     Indication: ACUTE MYELOID LEUKAEMIA
     Route: 058
     Dates: start: 20191220, end: 20191226
  2. ASP2215 [Suspect]
     Active Substance: GILTERITINIB
     Indication: ACUTE MYELOID LEUKAEMIA
     Route: 048
     Dates: start: 20191220

REACTIONS (3)
  - Cytomegalovirus infection [Recovered/Resolved]
  - Oesophagitis [Not Recovered/Not Resolved]
  - Intestinal dilatation [Not Recovered/Not Resolved]

NARRATIVE: CASE EVENT DATE: 20191220
